FAERS Safety Report 17725893 (Version 1)
Quarter: 2020Q2

REPORT INFORMATION
  Report Type: Spontaneous
  Country: DE (occurrence: DE)
  Receive Date: 20200429
  Receipt Date: 20200429
  Transmission Date: 20200714
  Serious: Yes (Other)
  Sender: FDA-Public Use
  Company Number: NVSC2020DE114979

PATIENT
  Sex: Male

DRUGS (1)
  1. AMOXICLAV 875/125 - 1 A PHARMA [Suspect]
     Active Substance: AMOXICILLIN\CLAVULANATE POTASSIUM
     Indication: BRONCHITIS
     Dosage: 875/125
     Route: 065
     Dates: start: 2020, end: 2020

REACTIONS (8)
  - Transaminases increased [Not Recovered/Not Resolved]
  - Eosinophilia [Not Recovered/Not Resolved]
  - Myalgia [Unknown]
  - Fatigue [Unknown]
  - Drug reaction with eosinophilia and systemic symptoms [Unknown]
  - Skin discolouration [Recovering/Resolving]
  - Arthralgia [Unknown]
  - C-reactive protein increased [Not Recovered/Not Resolved]
